FAERS Safety Report 23285728 (Version 5)
Quarter: 2025Q3

REPORT INFORMATION
  Report Type: Spontaneous
  Country: US (occurrence: US)
  Receive Date: 20231212
  Receipt Date: 20250816
  Transmission Date: 20251020
  Serious: No
  Sender: ALEXION PHARMACEUTICALS
  Company Number: 2023A273897

PATIENT

DRUGS (1)
  1. AIRSUPRA [Suspect]
     Active Substance: ALBUTEROL SULFATE\BUDESONIDE

REACTIONS (7)
  - Arthritis [Unknown]
  - Nasopharyngitis [Unknown]
  - Feeling jittery [Unknown]
  - Emotional distress [Unknown]
  - Illness [Unknown]
  - Drug dose omission by device [Unknown]
  - Device delivery system issue [Unknown]
